FAERS Safety Report 7842623-3 (Version None)
Quarter: 2011Q4

REPORT INFORMATION
  Report Type: 
  Country: None (occurrence: None)
  Receive Date: 20111025
  Receipt Date: 20111013
  Transmission Date: 20120403
  Serious: Yes (Hospitalization)
  Sender: FDA-Public Use
  Company Number: US-PFIZER INC-2011161245

PATIENT
  Sex: Female
  Weight: 104 kg

DRUGS (16)
  1. POTASSIUM CHLORIDE [Concomitant]
     Indication: MEDICAL DIET
     Dosage: UNK
     Dates: end: 20110514
  2. LEVOSALBUTAMOL [Concomitant]
     Indication: LUNG NEOPLASM MALIGNANT
     Dosage: AS NEEDED
     Dates: start: 20110513, end: 20110514
  3. ALLOPURINOL [Concomitant]
     Dosage: UNK
     Dates: start: 20110615
  4. AMLODIPINE [Concomitant]
     Dosage: UNK
     Dates: start: 20110615
  5. ACEBUTOLOL [Concomitant]
     Indication: HYPERTENSION
     Dosage: STARTED PRE 2006
     Dates: end: 20110514
  6. LEVOSALBUTAMOL [Concomitant]
     Dosage: UNK
     Dates: start: 20110615
  7. POTASSIUM CHLORIDE [Concomitant]
     Dosage: UNK
     Dates: start: 20110615
  8. CRIZOTINIB [Suspect]
     Indication: NON-SMALL CELL LUNG CANCER
     Dosage: 250 MG, 2X/DAY
     Route: 048
     Dates: start: 20110617, end: 20110713
  9. ALBUTEROL [Concomitant]
     Indication: LUNG NEOPLASM MALIGNANT
     Dosage: AS NEEDED
     Route: 055
     Dates: end: 20110513
  10. BENZONATATE [Concomitant]
     Dosage: UNK
     Dates: start: 20110615
  11. METOPROLOL [Concomitant]
     Indication: HYPERTENSION
     Dosage: UNK
     Dates: start: 20110615
  12. BENZONATATE [Concomitant]
     Indication: COUGH
     Dosage: UNK
     Dates: end: 20110514
  13. ALLOPURINOL [Concomitant]
     Indication: HYPERTENSION
     Dosage: UNK
     Dates: end: 20110514
  14. AMLODIPINE [Concomitant]
     Indication: HYPERTENSION
     Dosage: UNK
     Dates: end: 20110514
  15. FOLIC ACID [Concomitant]
     Indication: MEDICAL DIET
     Dosage: UNK
     Dates: end: 20110514
  16. FOLIC ACID [Concomitant]
     Dosage: UNK
     Dates: start: 20110615

REACTIONS (2)
  - PLEURAL EFFUSION [None]
  - RESPIRATORY FAILURE [None]
